FAERS Safety Report 6025925-5 (Version None)
Quarter: 2009Q1

REPORT INFORMATION
  Report Type: 
  Country: None (occurrence: None)
  Receive Date: 20090102
  Receipt Date: 20081219
  Transmission Date: 20090719
  Serious: Yes (Death)
  Sender: FDA-Public Use
  Company Number: JP-ROCHE-603242

PATIENT
  Age: 59 Year
  Sex: Male

DRUGS (2)
  1. CELLCEPT [Suspect]
     Indication: PROPHYLAXIS AGAINST GRAFT VERSUS HOST DISEASE
     Route: 048
  2. NEORAL [Concomitant]
     Indication: PROPHYLAXIS AGAINST GRAFT VERSUS HOST DISEASE
     Route: 048

REACTIONS (1)
  - IDIOPATHIC PNEUMONIA SYNDROME [None]
